FAERS Safety Report 10257192 (Version 1)
Quarter: 2014Q2

REPORT INFORMATION
  Report Type: Spontaneous
  Country: US (occurrence: None)
  Receive Date: 20140623
  Receipt Date: 20140623
  Transmission Date: 20141212
  Serious: No
  Sender: FDA-Public Use
  Company Number: None

PATIENT
  Age: 29 Year
  Sex: Male
  Weight: 113.4 kg

DRUGS (11)
  1. BUPROPION [Suspect]
     Indication: MAJOR DEPRESSION
     Dosage: 1 PILL ONCE DAILY TAKEN BY MOUTH
     Route: 048
     Dates: start: 20090601, end: 20091001
  2. BUPROPION [Suspect]
     Indication: GENERALISED ANXIETY DISORDER
     Dosage: 1 PILL ONCE DAILY TAKEN BY MOUTH
     Route: 048
     Dates: start: 20090601, end: 20091001
  3. FLUOXETINE [Concomitant]
  4. LANSOPRAZOLE [Concomitant]
  5. APLENZIN [Concomitant]
  6. TESTOSTERONE [Concomitant]
  7. CPAP MACHINE [Concomitant]
  8. VITAMIN B COMPLEX [Concomitant]
  9. MAGNESIUM [Concomitant]
  10. IBUPROFEN [Concomitant]
  11. ACETOAMINOPHEN [Concomitant]

REACTIONS (6)
  - Depression [None]
  - Aggression [None]
  - Divorced [None]
  - Loss of employment [None]
  - Product substitution issue [None]
  - Product formulation issue [None]
